FAERS Safety Report 4568003-4 (Version None)
Quarter: 2005Q1

REPORT INFORMATION
  Report Type: 
  Country: None (occurrence: None)
  Receive Date: 20050131
  Receipt Date: 20050117
  Transmission Date: 20050727
  Serious: Yes (Death, Hospitalization)
  Sender: FDA-Public Use
  Company Number: A0542033A

PATIENT
  Age: 38 Year
  Sex: Female

DRUGS (5)
  1. PAXIL CR [Suspect]
     Indication: DEPRESSION
     Dosage: 75 MG PER DAY, ORAL
     Route: 048
     Dates: start: 20021112
  2. LORAZEPAM [Suspect]
     Dosage: SINGLE DOSE
  3. MINOCYCLINE HYDROCHLORIDE [Concomitant]
  4. HYPERICUM [Concomitant]
  5. ETHANOL [Concomitant]

REACTIONS (10)
  - ABNORMAL BEHAVIOUR [None]
  - AGITATION [None]
  - AKATHISIA [None]
  - ALCOHOL USE [None]
  - COMPLETED SUICIDE [None]
  - HALLUCINATION, AUDITORY [None]
  - INJURY ASPHYXIATION [None]
  - PANIC ATTACK [None]
  - RESTLESSNESS [None]
  - SUICIDAL IDEATION [None]
